FAERS Safety Report 4504850-2 (Version None)
Quarter: 2004Q4

REPORT INFORMATION
  Report Type: 
  Country: None (occurrence: None)
  Receive Date: 20040928
  Receipt Date: 20040826
  Transmission Date: 20050328
  Serious: No
  Sender: FDA-Public Use
  Company Number: 04P-163-0267525-00

PATIENT
  Age: 67 Year
  Sex: Female
  Weight: 88.4514 kg

DRUGS (10)
  1. HUMIRA [Suspect]
     Indication: RHEUMATOID ARTHRITIS
     Dosage: 40 MG, SUBCUTANEOUS
     Route: 058
     Dates: start: 20040618, end: 20040716
  2. FUROSEMIDE [Concomitant]
  3. POTASSIUM [Concomitant]
  4. GLIPIZIDE [Concomitant]
  5. ISOSORBIDE [Concomitant]
  6. ACETYLSALICYLIC ACID [Concomitant]
  7. LOSARTAN POTASSIUM [Concomitant]
  8. PARACETAMOL [Concomitant]
  9. MULTI-VITAMINS [Concomitant]
  10. CETIRIZINE HCL [Concomitant]

REACTIONS (7)
  - BLOOD POTASSIUM DECREASED [None]
  - CHILLS [None]
  - COUGH [None]
  - HYPOAESTHESIA [None]
  - OEDEMA PERIPHERAL [None]
  - PAIN [None]
  - PYREXIA [None]
